FAERS Safety Report 9364838 (Version 1)
Quarter: 2013Q2

REPORT INFORMATION
  Report Type: Spontaneous
  Country: US (occurrence: US)
  Receive Date: 20130624
  Receipt Date: 20130624
  Transmission Date: 20140414
  Serious: No
  Sender: FDA-Public Use
  Company Number: US-009507513-1306USA007908

PATIENT
  Age: 28 Year
  Sex: Female

DRUGS (4)
  1. PROVENTIL [Suspect]
     Dosage: 1 TO 2 PUFFS EVERY 4 TO 6 HOURS AS NEEDED, PRN
     Route: 055
     Dates: start: 20120730
  2. WELLBUTRIN [Concomitant]
  3. ADDERALL TABLETS [Concomitant]
  4. ZARAH [Concomitant]
     Dosage: 1 TO 2 PUFFS EVERY 4 TO 6 HOURS AS NEEDED

REACTIONS (1)
  - Drug ineffective [Unknown]
